FAERS Safety Report 18507638 (Version 1)
Quarter: 2020Q4

REPORT INFORMATION
  Report Type: Spontaneous
  Country: AU (occurrence: AU)
  Receive Date: 20201116
  Receipt Date: 20201116
  Transmission Date: 20210114
  Serious: Yes (Hospitalization)
  Sender: FDA-Public Use
  Company Number: AU-PFIZER INC-2020446719

PATIENT
  Age: 59 Year
  Sex: Female

DRUGS (10)
  1. BECLOMETHASONE [Concomitant]
     Active Substance: BECLOMETHASONE
     Indication: WHEEZING
  2. PREDNISOLONE. [Suspect]
     Active Substance: PREDNISOLONE
     Indication: NOCTURNAL DYSPNOEA
     Dosage: 40 MG, DAILY
     Route: 048
  3. HYDROCORTISONE. [Suspect]
     Active Substance: HYDROCORTISONE
     Indication: RESPIRATORY DISTRESS
     Dosage: 500 MG, 2X/DAY
     Route: 042
  4. VENTOLINE [SALBUTAMOL] [Concomitant]
     Active Substance: ALBUTEROL SULFATE
     Indication: NOCTURNAL DYSPNOEA
     Dosage: UNK
     Route: 045
  5. THEOPHYLLINE [Concomitant]
     Active Substance: THEOPHYLLINE ANHYDROUS
     Indication: WHEEZING
  6. AMINOPHYLLINE. [Concomitant]
     Active Substance: AMINOPHYLLINE
     Indication: RESPIRATORY DISTRESS
     Dosage: UNK
     Route: 042
  7. THEOPHYLLINE [Concomitant]
     Active Substance: THEOPHYLLINE ANHYDROUS
     Indication: NOCTURNAL DYSPNOEA
     Dosage: UNK
     Route: 048
  8. BECLOMETHASONE [Concomitant]
     Active Substance: BECLOMETHASONE
     Indication: NOCTURNAL DYSPNOEA
     Dosage: UNK
     Route: 045
  9. PREDNISOLONE. [Suspect]
     Active Substance: PREDNISOLONE
     Indication: WHEEZING
  10. VENTOLINE [SALBUTAMOL] [Concomitant]
     Active Substance: ALBUTEROL SULFATE
     Indication: WHEEZING

REACTIONS (2)
  - Schizophrenia [Recovered/Resolved]
  - Substance-induced psychotic disorder [Recovered/Resolved]
